FAERS Safety Report 6440484-0 (Version None)
Quarter: 2009Q4

REPORT INFORMATION
  Report Type: 
  Country: None (occurrence: None)
  Receive Date: 20091113
  Receipt Date: 20091104
  Transmission Date: 20100525
  Serious: Yes (Hospitalization, Other)
  Sender: FDA-Public Use
  Company Number: DK-ABBOTT-09P-044-0600073-00

PATIENT
  Sex: Female
  Weight: 101 kg

DRUGS (44)
  1. HUMIRA [Suspect]
     Indication: RHEUMATOID ARTHRITIS
     Dates: start: 20090315, end: 20090701
  2. DUOVENT [Concomitant]
     Indication: LUNG DISORDER
  3. DUOVENT [Concomitant]
     Indication: ASTHMA
  4. SYMBICORT FORTE [Concomitant]
     Indication: CHRONIC OBSTRUCTIVE PULMONARY DISEASE
     Dosage: (9 + 320 MICROG/DOSE)
     Route: 055
  5. CEFUROXIME [Concomitant]
     Indication: PNEUMONIA
     Route: 042
     Dates: start: 20091027, end: 20091029
  6. OMEPRAZOLE [Concomitant]
     Indication: GASTRIC PH DECREASED
     Route: 048
  7. ONDANSETRON [Concomitant]
     Indication: CHEMOTHERAPY
     Route: 048
     Dates: start: 20091027
  8. ONDANSETRON [Concomitant]
     Indication: PROPHYLACTIC CHEMOTHERAPY
     Dosage: 4 MILLILITERS ONLY WHEN NEEDED
     Route: 040
     Dates: start: 20091027
  9. CALCICHEW-D3 [Concomitant]
     Indication: MINERAL SUPPLEMENTATION
     Dosage: 500 MG + 5 MICROG
  10. CALCICHEW-D3 [Concomitant]
     Indication: VITAMIN SUPPLEMENTATION
  11. KALEORID [Concomitant]
     Indication: MINERAL SUPPLEMENTATION
     Route: 048
  12. PLAVIX [Concomitant]
     Indication: PROPHYLAXIS
  13. PLAVIX [Concomitant]
     Indication: THROMBOSIS
  14. CENTYL MED KALIUMKLORID [Concomitant]
     Indication: DIURETIC THERAPY
     Dosage: 2.5 + 573 MG
     Route: 048
  15. FURIX [Concomitant]
     Indication: DIURETIC THERAPY
  16. ATENOR [Concomitant]
     Indication: HYPERTENSION
     Route: 048
  17. AMLODIPINE [Concomitant]
     Indication: PROPHYLAXIS
     Route: 048
  18. AMLODIPINE [Concomitant]
     Indication: ANGINA PECTORIS
  19. ZARATOR [Concomitant]
     Indication: BLOOD CHOLESTEROL INCREASED
     Route: 048
  20. PREDNISOLONE [Concomitant]
     Indication: ADRENOCORTICAL STEROID THERAPY
     Route: 048
  21. NITROFURANTOIN [Concomitant]
     Indication: URINARY TRACT INFECTION
     Route: 048
     Dates: start: 20091027, end: 20091103
  22. OXYCONTIN [Concomitant]
     Indication: PAIN
     Route: 047
  23. PINEX [Concomitant]
     Indication: PAIN
     Route: 048
  24. SIFROL [Concomitant]
     Indication: RESTLESS LEGS SYNDROME
     Route: 048
  25. IMOCLONE [Concomitant]
     Indication: SLEEP DISORDER THERAPY
     Route: 048
  26. CITALOPRAM HYDROBROMIDE [Concomitant]
     Indication: DEPRESSION
  27. PHENERGAN HCL [Concomitant]
     Indication: SEDATIVE THERAPY
     Route: 048
  28. PHENERGAN HCL [Concomitant]
     Indication: INSOMNIA
     Route: 048
  29. BRICANYL [Concomitant]
     Indication: BRONCHOSPASM
     Route: 055
  30. NITROMEX [Concomitant]
     Indication: CHEST PAIN
     Route: 060
  31. NITROMEX [Concomitant]
     Indication: PROPHYLAXIS
  32. MORFIN [Concomitant]
     Indication: PAIN PROPHYLAXIS
     Route: 042
  33. PRIMPERAN [Concomitant]
     Indication: PROPHYLAXIS OF NAUSEA AND VOMITING
     Route: 048
  34. IMOLOPE [Concomitant]
     Indication: PROPHYLAXIS AGAINST DIARRHOEA
     Route: 048
  35. OXYNORM [Concomitant]
     Indication: PAIN PROPHYLAXIS
  36. APOZEPAM [Concomitant]
     Indication: SEDATIVE THERAPY
     Route: 048
  37. LORAZEPAM [Concomitant]
     Indication: PROPHYLAXIS OF NAUSEA AND VOMITING
     Route: 048
  38. TAFIL [Concomitant]
     Indication: SEDATIVE THERAPY
     Route: 048
  39. NOSKAPIN [Concomitant]
     Indication: ANTITUSSIVE THERAPY
     Route: 048
  40. PECTYL BRYSTDR?BER (BENZOE ACID AND OPIUM) [Concomitant]
     Indication: ANTITUSSIVE THERAPY
     Route: 048
  41. CERTIRZIN [Concomitant]
     Indication: URTICARIA
  42. DUOVENT [Concomitant]
     Indication: CHEST PAIN
     Route: 055
  43. ODANSETRON [Concomitant]
     Indication: PROPHYLACTIC CHEMOTHERAPY
     Dosage: BOLUS
     Route: 042
  44. PHENERGAN HCL [Concomitant]
     Route: 048

REACTIONS (5)
  - DYSPHONIA [None]
  - DYSPNOEA [None]
  - LUNG NEOPLASM MALIGNANT [None]
  - PNEUMONIA [None]
  - PYREXIA [None]
